FAERS Safety Report 9056471 (Version 1)
Quarter: 2013Q1

REPORT INFORMATION
  Report Type: Spontaneous
  Country: US (occurrence: US)
  Receive Date: 20130204
  Receipt Date: 20130204
  Transmission Date: 20140127
  Serious: No
  Sender: FDA-Public Use
  Company Number: US-PFIZER INC-2013042994

PATIENT
  Age: 3 Year
  Sex: Male
  Weight: 14.97 kg

DRUGS (1)
  1. CHILDRENS ADVIL [Suspect]
     Indication: PYREXIA
     Dosage: UNK, ONCE
     Dates: start: 20130130, end: 20130130

REACTIONS (2)
  - Retching [Unknown]
  - Product taste abnormal [Unknown]
